FAERS Safety Report 5247158-2 (Version None)
Quarter: 2007Q1

REPORT INFORMATION
  Report Type: 
  Country: None (occurrence: None)
  Receive Date: 20070221
  Receipt Date: 20070202
  Transmission Date: 20070707
  Serious: Yes (Other)
  Sender: FDA-Public Use
  Company Number: 2007SP000991

PATIENT
  Age: 43 Year
  Sex: Female
  Weight: 49.8957 kg

DRUGS (2)
  1. ALBUTEROL [Suspect]
     Indication: ASTHMA
     Dosage: ONCE PO
     Route: 048
     Dates: start: 19991101, end: 19991101
  2. IVAX ALBUTEROL [Concomitant]

REACTIONS (2)
  - EYE SWELLING [None]
  - PHARYNGEAL OEDEMA [None]
